APPROVED DRUG PRODUCT: CLINDAMYCIN PHOSPHATE
Active Ingredient: CLINDAMYCIN PHOSPHATE
Strength: EQ 1% BASE
Dosage Form/Route: GEL;TOPICAL
Application: A215219 | Product #001
Applicant: AMNEAL PHARMACEUTICALS LLC
Approved: Nov 3, 2022 | RLD: No | RS: No | Type: DISCN